FAERS Safety Report 21261254 (Version 1)
Quarter: 2022Q3

REPORT INFORMATION
  Report Type: Spontaneous
  Country: NG (occurrence: NG)
  Receive Date: 20220826
  Receipt Date: 20220826
  Transmission Date: 20221026
  Serious: Yes (Death)
  Sender: FDA-Public Use
  Company Number: NG-ABBVIE-22K-121-4519546-00

PATIENT
  Sex: Female

DRUGS (4)
  1. RITONAVIR [Suspect]
     Active Substance: RITONAVIR
     Indication: Maternal exposure timing unspecified
     Route: 064
  2. DARUNAVIR [Concomitant]
     Active Substance: DARUNAVIR
     Indication: Maternal exposure timing unspecified
     Route: 064
  3. DOLUTEGRAVIR [Concomitant]
     Active Substance: DOLUTEGRAVIR
     Indication: Maternal exposure timing unspecified
     Route: 064
  4. COMBIVIR [Concomitant]
     Active Substance: LAMIVUDINE\ZIDOVUDINE
     Indication: Maternal exposure timing unspecified
     Route: 064

REACTIONS (2)
  - Foetal death [Fatal]
  - Foetal exposure during pregnancy [Unknown]
